FAERS Safety Report 9923514 (Version 1)
Quarter: 2014Q1

REPORT INFORMATION
  Report Type: Spontaneous
  Country: US (occurrence: US)
  Receive Date: 20140225
  Receipt Date: 20140225
  Transmission Date: 20141002
  Serious: No
  Sender: FDA-Public Use
  Company Number: US-AMGEN-USASP2013084490

PATIENT
  Age: 37 Year
  Sex: Female

DRUGS (9)
  1. ENBREL [Suspect]
     Indication: PRODUCT USED FOR UNKNOWN INDICATION
     Dosage: 50 MG, QWK
     Route: 058
  2. CALCIUM [Concomitant]
     Dosage: UNK
  3. APAP W/HYDROCODONE [Concomitant]
     Dosage: 5-500 MG, UNK
  4. IMITREX                            /01044801/ [Concomitant]
     Dosage: 100 MG, UNK
  5. PREDNISONE [Concomitant]
     Dosage: 10 MG, UNK
  6. FLEXERIL                           /00428402/ [Concomitant]
     Dosage: 10 MG, UNK
  7. CITALOPRAM [Concomitant]
     Dosage: 10 MG, UNK
  8. TRAZODONE [Concomitant]
     Dosage: 100 MG, UNK
  9. NAPROXEN [Concomitant]
     Dosage: 250 MG, UNK

REACTIONS (3)
  - Injection site erythema [Unknown]
  - Injection site bruising [Unknown]
  - Injection site pain [Unknown]
